FAERS Safety Report 17707648 (Version 4)
Quarter: 2022Q2

REPORT INFORMATION
  Report Type: Spontaneous
  Country: KR (occurrence: KR)
  Receive Date: 20200424
  Receipt Date: 20220406
  Transmission Date: 20220721
  Serious: Yes (Death, Other)
  Sender: FDA-Public Use
  Company Number: KR-JAZZ-2020-KR-005501

PATIENT

DRUGS (1)
  1. DEFITELIO [Suspect]
     Active Substance: DEFIBROTIDE SODIUM
     Indication: Product used for unknown indication
     Dosage: 8 VIALS/DAY
     Route: 065
     Dates: start: 20200414

REACTIONS (1)
  - Death [Fatal]

NARRATIVE: CASE EVENT DATE: 20200401
